FAERS Safety Report 11941905 (Version 3)
Quarter: 2018Q3

REPORT INFORMATION
  Report Type: Spontaneous
  Country: US (occurrence: US)
  Receive Date: 20160124
  Receipt Date: 20180829
  Transmission Date: 20181010
  Serious: Yes (Hospitalization, Other)
  Sender: FDA-Public Use
  Company Number: US-DSJP-DSU-2015-120470

PATIENT

DRUGS (3)
  1. CARVEDILOL. [Concomitant]
     Active Substance: CARVEDILOL
     Indication: PRODUCT USED FOR UNKNOWN INDICATION
     Dosage: 6.25 MG, BID
     Dates: start: 2013
  2. BENICAR HCT [Suspect]
     Active Substance: HYDROCHLOROTHIAZIDE\OLMESARTAN MEDOXOMIL
     Indication: HYPERTENSION
     Dosage: 40/25 MG ONCE PER DAY
     Dates: start: 20060101, end: 201501
  3. COZAAR [Concomitant]
     Active Substance: LOSARTAN POTASSIUM
     Indication: PRODUCT USED FOR UNKNOWN INDICATION
     Dosage: 100/25 MG, ONCE PER DAY
     Dates: start: 2014, end: 2015

REACTIONS (13)
  - Hiatus hernia [Unknown]
  - Large intestine polyp [Unknown]
  - Sprue-like enteropathy [Unknown]
  - Haemorrhoids [Unknown]
  - Inflammatory bowel disease [Unknown]
  - Impaired gastric emptying [Unknown]
  - Diverticulitis [Not Recovered/Not Resolved]
  - Melaena [Unknown]
  - Haematochezia [Unknown]
  - Diverticulum [Unknown]
  - Irritable bowel syndrome [Unknown]
  - Renal failure [Unknown]
  - Gastrointestinal haemorrhage [Unknown]

NARRATIVE: CASE EVENT DATE: 2007
